FAERS Safety Report 8759277 (Version 1)
Quarter: 2012Q4

REPORT INFORMATION
  Report Type: 
  Country: US (occurrence: US)
  Receive Date: 20120829
  Receipt Date: 20120829
  Transmission Date: 20130627
  Serious: Yes (Other)
  Sender: FDA-Public Use
  Company Number: US-GENZYME-FABR-1002709

PATIENT
  Age: 35 Year
  Sex: Male

DRUGS (4)
  1. FABRAZYME [Suspect]
     Indication: FABRY^S DISEASE
     Dosage: UNK
     Route: 042
     Dates: start: 2007
  2. FABRAZYME [Suspect]
     Dosage: 35 mg, q2w
     Route: 042
     Dates: start: 20120612
  3. BENADRYL [Concomitant]
     Indication: PREMEDICATION
     Dosage: 50 mg, q2w
     Route: 065
  4. TYLENOL [Concomitant]
     Indication: PREMEDICATION
     Dosage: 1000 mg, q2w
     Route: 065

REACTIONS (2)
  - Cardiac pacemaker insertion [Unknown]
  - Asthenia [Unknown]
